FAERS Safety Report 9249952 (Version 1)
Quarter: 2013Q2

REPORT INFORMATION
  Report Type: Spontaneous
  Country: US (occurrence: US)
  Receive Date: 20130424
  Receipt Date: 20130424
  Transmission Date: 20140414
  Serious: Yes (Hospitalization, Other)
  Sender: FDA-Public Use
  Company Number: US-009507513-1304USA011747

PATIENT
  Age: 39 Year
  Sex: Female

DRUGS (1)
  1. FOLLISTIM AQ CARTRIDGE [Suspect]
     Indication: INFERTILITY
     Dosage: 75 IU DAILY
     Route: 058
     Dates: start: 20130413, end: 20130413

REACTIONS (3)
  - Hypersensitivity [Recovering/Resolving]
  - Dysphagia [Recovering/Resolving]
  - Aphonia [Recovering/Resolving]
